FAERS Safety Report 17845575 (Version 5)
Quarter: 2020Q2

REPORT INFORMATION
  Report Type: Spontaneous
  Country: US (occurrence: US)
  Receive Date: 20200601
  Receipt Date: 20200629
  Transmission Date: 20200714
  Serious: No
  Sender: FDA-Public Use
  Company Number: US-PFIZER INC-2019346446

PATIENT
  Age: 58 Year
  Sex: Female
  Weight: 68.49 kg

DRUGS (1)
  1. CHANTIX [Suspect]
     Active Substance: VARENICLINE TARTRATE
     Indication: SMOKING CESSATION THERAPY
     Dosage: 1 MG, 2X/DAY
     Route: 048
     Dates: start: 20190819

REACTIONS (5)
  - Drug ineffective [Unknown]
  - Anxiety [Unknown]
  - Nausea [Unknown]
  - Feeling abnormal [Unknown]
  - Anger [Unknown]
